FAERS Safety Report 13998700 (Version 1)
Quarter: 2017Q3

REPORT INFORMATION
  Report Type: Spontaneous
  Country: US (occurrence: None)
  Receive Date: 20170922
  Receipt Date: 20170922
  Transmission Date: 20171128
  Serious: Yes (Death)
  Sender: FDA-Public Use
  Company Number: None

PATIENT
  Age: 15 Year
  Sex: Female
  Weight: 75.3 kg

DRUGS (8)
  1. DEXAMETHASONE. [Suspect]
     Active Substance: DEXAMETHASONE
     Dates: end: 20140728
  2. DOXORUBICIN HYDROCHLORIDE. [Suspect]
     Active Substance: DOXORUBICIN HYDROCHLORIDE
     Dates: end: 20140722
  3. ONCASPAR [Suspect]
     Active Substance: PEGASPARGASE
     Dates: end: 20140826
  4. CYCLOPHOSPHAMIDE. [Suspect]
     Active Substance: CYCLOPHOSPHAMIDE
     Dates: end: 20140812
  5. CYTARABINE. [Suspect]
     Active Substance: CYTARABINE
     Dates: end: 20140822
  6. THIOGUANINE (6-TG) [Suspect]
     Active Substance: THIOGUANINE ANHYDROUS
     Dates: end: 20140825
  7. METHOTREXATE. [Suspect]
     Active Substance: METHOTREXATE
     Dates: end: 20140819
  8. VINCRISTINE SULFATE. [Suspect]
     Active Substance: VINCRISTINE SULFATE
     Dates: end: 20140826

REACTIONS (16)
  - Chills [None]
  - Blood culture positive [None]
  - Diabetic ketoacidosis [None]
  - Pleural effusion [None]
  - Respiratory distress [None]
  - Hypotension [None]
  - Haematuria [None]
  - Haematemesis [None]
  - Tachypnoea [None]
  - Bronchomalacia [None]
  - Neutrophil count decreased [None]
  - Pyrexia [None]
  - Pneumonia necrotising [None]
  - Empyema [None]
  - Platelet count decreased [None]
  - Pseudomonas test positive [None]

NARRATIVE: CASE EVENT DATE: 20140828
